FAERS Safety Report 5883684-0 (Version None)
Quarter: 2008Q3

REPORT INFORMATION
  Report Type: 
  Country: None (occurrence: None)
  Receive Date: 20080912
  Receipt Date: 20080912
  Transmission Date: 20090109
  Serious: Yes (Other)
  Sender: FDA-Public Use
  Company Number: None

PATIENT
  Age: 57 Year
  Sex: Female
  Weight: 72.5755 kg

DRUGS (1)
  1. ENBREL [Suspect]
     Indication: RHEUMATOID ARTHRITIS
     Dosage: 50 MGS QWK SQ
     Route: 058
     Dates: start: 20080622, end: 20080911

REACTIONS (3)
  - ABDOMINAL NEOPLASM [None]
  - INJECTION SITE REACTION [None]
  - NEOPLASM MALIGNANT [None]
